FAERS Safety Report 8347437-6 (Version None)
Quarter: 2012Q2

REPORT INFORMATION
  Report Type: 
  Country: None (occurrence: None)
  Receive Date: 20120509
  Receipt Date: 20120425
  Transmission Date: 20120825
  Serious: Yes (Death, Other)
  Sender: FDA-Public Use
  Company Number: CA-ROCHE-1063365

PATIENT
  Sex: Male
  Weight: 55.842 kg

DRUGS (13)
  1. ENALAPRIL MALEATE [Concomitant]
  2. FOLIC ACID [Concomitant]
  3. DOMPERIDONE [Concomitant]
  4. SELENIUM [Concomitant]
  5. DOXYCYCLINE [Concomitant]
  6. LACTOBACILLUS [Concomitant]
  7. MAXERAN [Concomitant]
  8. METFORMIN HCL [Concomitant]
  9. NEXIUM [Concomitant]
  10. XELODA [Suspect]
     Indication: GASTROINTESTINAL CARCINOMA
     Route: 048
     Dates: start: 20120101, end: 20120424
  11. VITAMIN C [Concomitant]
  12. VITAMIN B COMPLEX CAP [Concomitant]
  13. LIPITOR [Concomitant]

REACTIONS (2)
  - DEATH [None]
  - PNEUMOTHORAX [None]
